FAERS Safety Report 20189449 (Version 1)
Quarter: 2021Q4

REPORT INFORMATION
  Report Type: Spontaneous
  Country: US (occurrence: None)
  Receive Date: 20211215
  Receipt Date: 20211215
  Transmission Date: 20220303
  Serious: Yes (Hospitalization)
  Sender: FDA-Public Use
  Company Number: None

PATIENT
  Sex: Female

DRUGS (1)
  1. HUMIRA [Suspect]
     Active Substance: ADALIMUMAB

REACTIONS (7)
  - Weight fluctuation [None]
  - Shock [None]
  - Quality of life decreased [None]
  - Cardiac arrest [None]
  - Abdominal pain [None]
  - Diarrhoea [None]
  - Wrong technique in product usage process [None]
